FAERS Safety Report 11540582 (Version 1)
Quarter: 2015Q3

REPORT INFORMATION
  Report Type: Spontaneous
  Country: US (occurrence: US)
  Receive Date: 20150923
  Receipt Date: 20150923
  Transmission Date: 20151125
  Serious: No
  Sender: FDA-Public Use
  Company Number: US-BEH-2015050328

PATIENT
  Sex: Male
  Weight: 126 kg

DRUGS (31)
  1. FLUTICASONE [Concomitant]
     Active Substance: FLUTICASONE\FLUTICASONE PROPIONATE
  2. NORVASC [Concomitant]
     Active Substance: AMLODIPINE BESYLATE
  3. FUROSEMIDE. [Concomitant]
     Active Substance: FUROSEMIDE
  4. CLONIDINE. [Concomitant]
     Active Substance: CLONIDINE
  5. PROAIR HFA [Concomitant]
     Active Substance: ALBUTEROL SULFATE
  6. MONTELUKAST [Concomitant]
     Active Substance: MONTELUKAST SODIUM
  7. TRAVATAN Z [Concomitant]
     Active Substance: TRAVOPROST
  8. ALLOPURINOL. [Concomitant]
     Active Substance: ALLOPURINOL
  9. XOPENEX [Concomitant]
     Active Substance: LEVALBUTEROL HYDROCHLORIDE
  10. MUCINEX [Concomitant]
     Active Substance: GUAIFENESIN
  11. CELEBREX [Concomitant]
     Active Substance: CELECOXIB
  12. PRAVACHOL [Concomitant]
     Active Substance: PRAVASTATIN SODIUM
  13. DIOVAN [Concomitant]
     Active Substance: VALSARTAN
  14. ASPIRIN. [Concomitant]
     Active Substance: ASPIRIN
  15. DIPHENHYDRAMINE. [Concomitant]
     Active Substance: DIPHENHYDRAMINE
  16. REQUIP [Concomitant]
     Active Substance: ROPINIROLE HYDROCHLORIDE
  17. KEFLEX [Concomitant]
     Active Substance: CEPHALEXIN
  18. MULTIVITAMIN [Concomitant]
     Active Substance: VITAMINS
  19. SOLU-CORTEF [Concomitant]
     Active Substance: HYDROCORTISONE SODIUM SUCCINATE
  20. AZELASTINE [Concomitant]
     Active Substance: AZELASTINE
  21. RANITIDINE [Concomitant]
     Active Substance: RANITIDINE\RANITIDINE HYDROCHLORIDE
  22. CETIRIZINE [Concomitant]
     Active Substance: CETIRIZINE HYDROCHLORIDE
  23. NEXIUM [Concomitant]
     Active Substance: ESOMEPRAZOLE MAGNESIUM
  24. EPIPEN [Concomitant]
     Active Substance: EPINEPHRINE
  25. CLEOCIN [Concomitant]
     Active Substance: CLINDAMYCIN PHOSPHATE
  26. TESTOSTERONE. [Concomitant]
     Active Substance: TESTOSTERONE
  27. ROPINIROLE. [Concomitant]
     Active Substance: ROPINIROLE
  28. ARMOUR THYROID [Concomitant]
     Active Substance: THYROID, PORCINE\THYROID, UNSPECIFIED
  29. PRIVIGEN [Suspect]
     Active Substance: HUMAN IMMUNOGLOBULIN G
     Indication: HYPOGAMMAGLOBULINAEMIA
     Route: 042
  30. SYMBICORT [Concomitant]
     Active Substance: BUDESONIDE\FORMOTEROL FUMARATE DIHYDRATE
  31. NORMAL SALINE [Concomitant]
     Active Substance: SODIUM CHLORIDE

REACTIONS (2)
  - Sinusitis [Unknown]
  - Labyrinthitis [Unknown]
